FAERS Safety Report 5082407-5 (Version None)
Quarter: 2006Q3

REPORT INFORMATION
  Report Type: 
  Country: None (occurrence: None)
  Receive Date: 20060817
  Receipt Date: 20060621
  Transmission Date: 20061208
  Serious: Yes (Hospitalization)
  Sender: FDA-Public Use
  Company Number: JP-JPN-A200602177

PATIENT
  Age: 78 Year
  Sex: Male
  Weight: 58 kg

DRUGS (7)
  1. PAXIL [Suspect]
     Indication: DEPRESSION
     Route: 048
     Dates: start: 20060522, end: 20060605
  2. LEUCOVORIN CALCIUM [Concomitant]
     Indication: LARGE INTESTINE CARCINOMA
     Dosage: 75MG PER DAY
     Route: 048
     Dates: start: 20060508
  3. UFT [Concomitant]
     Indication: LARGE INTESTINE CARCINOMA
     Dosage: 450MG PER DAY
     Route: 048
     Dates: start: 20060508
  4. URSO [Concomitant]
     Indication: LIVER DISORDER
     Dosage: 600MG PER DAY
     Route: 048
  5. MEVALOTIN [Concomitant]
     Indication: HYPERLIPIDAEMIA
     Dosage: 10MG PER DAY
     Route: 048
  6. DEPAS [Concomitant]
     Indication: ANXIETY DISORDER
     Dosage: .5MG PER DAY
     Route: 048
  7. ADALAT [Concomitant]
     Indication: HYPERTENSION
     Dosage: 10MG PER DAY
     Route: 048
     Dates: start: 20060322

REACTIONS (7)
  - ANXIETY [None]
  - CONDITION AGGRAVATED [None]
  - DECREASED APPETITE [None]
  - DEPRESSION [None]
  - DIZZINESS [None]
  - HYPONATRAEMIA [None]
  - RESTLESSNESS [None]
